FAERS Safety Report 7387289-4 (Version None)
Quarter: 2011Q1

REPORT INFORMATION
  Report Type: 
  Country: None (occurrence: None)
  Receive Date: 20110331
  Receipt Date: 20110304
  Transmission Date: 20110831
  Serious: No
  Sender: FDA-Public Use
  Company Number: US-B.I. PHARMACEUTICALS,INC./RIDGEFIELD-2011-BP-06853BP

PATIENT
  Sex: Female

DRUGS (6)
  1. PRADAXA [Suspect]
     Indication: ATRIAL FIBRILLATION
     Dosage: 300 MG
     Route: 048
     Dates: start: 20110201
  2. LOPRESSOR [Concomitant]
     Indication: CARDIAC DISORDER
  3. DIOVAN [Concomitant]
     Indication: CARDIAC DISORDER
  4. TRAMADOL [Concomitant]
     Indication: HEADACHE
  5. ZETIA [Concomitant]
     Indication: CARDIAC DISORDER
  6. ISOSORBIDE DINITRATE [Concomitant]
     Indication: CARDIAC DISORDER

REACTIONS (5)
  - FALL [None]
  - FATIGUE [None]
  - FURUNCLE [None]
  - HEADACHE [None]
  - DIZZINESS [None]
